FAERS Safety Report 13626095 (Version 1)
Quarter: 2017Q2

REPORT INFORMATION
  Report Type: Spontaneous
  Country: US (occurrence: US)
  Receive Date: 20170531
  Receipt Date: 20170531
  Transmission Date: 20170830
  Serious: Yes (Death)
  Sender: FDA-Public Use
  Company Number: US-ASTELLAS-1267905

PATIENT
  Sex: Male

DRUGS (7)
  1. TARCEVA [Suspect]
     Active Substance: ERLOTINIB HYDROCHLORIDE
     Indication: LUNG NEOPLASM MALIGNANT
     Route: 065
     Dates: start: 201108, end: 201111
  2. TARCEVA [Suspect]
     Active Substance: ERLOTINIB HYDROCHLORIDE
     Route: 065
     Dates: start: 201202
  3. PLAVIX [Concomitant]
     Active Substance: CLOPIDOGREL BISULFATE
  4. SIMVASTATIN. [Concomitant]
     Active Substance: SIMVASTATIN
  5. WARFARIN [Concomitant]
     Active Substance: WARFARIN
  6. CARVEDILOL. [Concomitant]
     Active Substance: CARVEDILOL
  7. SLOW-MAG [Concomitant]
     Active Substance: MAGNESIUM CHLORIDE

REACTIONS (1)
  - Disease progression [Fatal]
